FAERS Safety Report 8395080-5 (Version None)
Quarter: 2012Q2

REPORT INFORMATION
  Report Type: 
  Country: None (occurrence: None)
  Receive Date: 20120524
  Receipt Date: 20120515
  Transmission Date: 20120825
  Serious: Yes (Hospitalization, Other)
  Sender: FDA-Public Use
  Company Number: DKLU1077594

PATIENT
  Age: 43 Year
  Sex: Male

DRUGS (11)
  1. METOPROLOL TARTRATE [Concomitant]
  2. ATIVAN [Concomitant]
  3. SABRIL [Suspect]
     Indication: COMPLEX PARTIAL SEIZURES
     Dosage: SEE IMAGE
     Route: 048
     Dates: start: 20120401
  4. SABRIL [Suspect]
     Indication: COMPLEX PARTIAL SEIZURES
     Dosage: SEE IMAGE
     Route: 048
     Dates: start: 20120402
  5. SABRIL [Suspect]
     Indication: COMPLEX PARTIAL SEIZURES
     Dosage: SEE IMAGE
     Route: 048
     Dates: start: 20110901
  6. SABRIL [Suspect]
     Indication: COMPLEX PARTIAL SEIZURES
     Dosage: SEE IMAGE
     Route: 048
     Dates: start: 20120402
  7. LEXAPRO (ESCITALIPRAM OXALATE) [Concomitant]
  8. LORAZEPAM [Concomitant]
  9. RISPERDAL [Concomitant]
  10. VIMPAT [Concomitant]
  11. TRILEPTAL [Concomitant]

REACTIONS (6)
  - DEPRESSION [None]
  - MUSCLE TWITCHING [None]
  - DEATH OF RELATIVE [None]
  - AGGRESSION [None]
  - DYSKINESIA [None]
  - ABNORMAL BEHAVIOUR [None]
